FAERS Safety Report 4513031-8 (Version None)
Quarter: 2004Q4

REPORT INFORMATION
  Report Type: 
  Country: None (occurrence: None)
  Receive Date: 20041130
  Receipt Date: 20041122
  Transmission Date: 20050328
  Serious: Yes (Hospitalization)
  Sender: FDA-Public Use
  Company Number: US-JNJFOC-20041105736

PATIENT
  Age: 86 Year
  Sex: Female

DRUGS (3)
  1. DURAGESIC [Suspect]
     Route: 062
     Dates: start: 20040401
  2. DURAGESIC [Suspect]
     Route: 062
     Dates: start: 20040401
  3. DURAGESIC [Suspect]
     Route: 062
     Dates: start: 20040401

REACTIONS (1)
  - CEREBROVASCULAR ACCIDENT [None]
